FAERS Safety Report 6271803-6 (Version None)
Quarter: 2009Q3

REPORT INFORMATION
  Report Type: 
  Country: None (occurrence: None)
  Receive Date: 20090717
  Receipt Date: 20090707
  Transmission Date: 20100115
  Serious: Yes (Hospitalization)
  Sender: FDA-Public Use
  Company Number: FR-PFIZER INC-2009236713

PATIENT
  Age: 60 Year

DRUGS (16)
  1. TRIFLUCAN [Suspect]
     Indication: CANDIDIASIS
     Dosage: UNK
     Route: 048
     Dates: start: 20090301
  2. CEFTRIAXONE [Suspect]
     Dosage: 1 G, 1X/DAY
     Route: 042
     Dates: start: 20090224, end: 20090305
  3. TAVANIC [Suspect]
     Dosage: 1 G, 1X/DAY
     Route: 048
     Dates: start: 20090224, end: 20090305
  4. DIFFU K [Concomitant]
     Route: 048
  5. CACIT [Concomitant]
     Route: 048
  6. KARDEGIC [Concomitant]
     Dosage: 75 MG, UNK
     Route: 048
  7. SEGLOR [Concomitant]
     Dosage: 5 MG, UNK
     Route: 048
  8. PLAVIX [Concomitant]
     Dosage: 75 MG, UNK
     Route: 048
  9. SERESTA [Concomitant]
     Dosage: 50 MG, UNK
     Route: 048
  10. GABAPENTIN [Concomitant]
     Dosage: 600 MG, UNK
     Route: 048
  11. BRONCHODUAL [Concomitant]
     Route: 048
  12. SPIRIVA [Concomitant]
     Route: 048
  13. PANTOPRAZOLE SODIUM [Concomitant]
     Dosage: 20 MG, UNK
     Route: 048
  14. CRESTOR [Concomitant]
     Dosage: 5 MG, UNK
     Route: 048
  15. XATRAL - SLOW RELEASE [Concomitant]
     Dosage: 10 MG, UNK
     Route: 048
  16. CONTRAMAL [Concomitant]
     Dosage: 100 MG, UNK
     Route: 048

REACTIONS (1)
  - CLOSTRIDIUM DIFFICILE COLITIS [None]
